FAERS Safety Report 6644243-5 (Version None)
Quarter: 2010Q1

REPORT INFORMATION
  Report Type: 
  Country: None (occurrence: None)
  Receive Date: 20100319
  Receipt Date: 20100319
  Transmission Date: 20100710
  Serious: Yes (Hospitalization)
  Sender: FDA-Public Use
  Company Number: None

PATIENT
  Age: 74 Year
  Sex: Male
  Weight: 109 kg

DRUGS (9)
  1. COUMADIN [Suspect]
     Indication: ATRIAL FIBRILLATION
     Dosage: 5MG/7MG SSMTTHF/QWED PO
     Route: 048
  2. ASPIRIN [Suspect]
     Indication: CORONARY ARTERY DISEASE
     Dosage: 81MG DAILY PO
     Route: 048
  3. PLAVIX [Suspect]
     Dosage: PO
     Route: 048
  4. FUROSEMIDE [Concomitant]
  5. ENALAPRIL MALEATE [Concomitant]
  6. ALDACTONE [Concomitant]
  7. METFORMIN HCL [Concomitant]
  8. TRAMADOL HCL [Concomitant]
  9. SIMVASTATIN [Concomitant]

REACTIONS (2)
  - SPONTANEOUS HAEMATOMA [None]
  - SUBDURAL HAEMATOMA [None]
